FAERS Safety Report 5150978-6 (Version None)
Quarter: 2006Q4

REPORT INFORMATION
  Report Type: 
  Country: None (occurrence: None)
  Receive Date: 20061108
  Receipt Date: 20061027
  Transmission Date: 20070319
  Serious: Yes (Other)
  Sender: FDA-Public Use
  Company Number: 2006132338

PATIENT
  Age: 43 Year
  Sex: Male

DRUGS (3)
  1. SULFASALAZINE [Suspect]
     Indication: ARTHRALGIA
     Dosage: 2 GRAM, ORAL
     Route: 048
     Dates: start: 20060613, end: 20060711
  2. METHOTREXATE [Concomitant]
  3. DICLOFENAC SODIUM [Concomitant]

REACTIONS (2)
  - DEPRESSION [None]
  - OBSESSIVE-COMPULSIVE DISORDER [None]
